FAERS Safety Report 18264923 (Version 2)
Quarter: 2020Q3

REPORT INFORMATION
  Report Type: Spontaneous
  Country: DE (occurrence: DE)
  Receive Date: 20200915
  Receipt Date: 20200915
  Transmission Date: 20201103
  Serious: Yes (Life-Threatening, Hospitalization)
  Sender: FDA-Public Use
  Company Number: DE-JNJFOC-20200912500

PATIENT
  Age: 72 Year
  Sex: Female

DRUGS (1)
  1. IBUPROFEN. [Suspect]
     Active Substance: IBUPROFEN
     Indication: SKIN ULCER
     Dosage: UP TO 4800 MG DAILY
     Route: 065

REACTIONS (3)
  - Hypokalaemia [Recovered/Resolved]
  - Renal tubular acidosis [Recovered/Resolved]
  - Overdose [Unknown]
